FAERS Safety Report 9771115 (Version 4)
Quarter: 2014Q1

REPORT INFORMATION
  Report Type: Spontaneous
  Country: JP (occurrence: JP)
  Receive Date: 20131218
  Receipt Date: 20140219
  Transmission Date: 20141002
  Serious: Yes (Other)
  Sender: FDA-Public Use
  Company Number: JP-UCBSA-102241

PATIENT
  Age: 15 Year
  Sex: Male

DRUGS (2)
  1. E KEPPRA [Suspect]
     Indication: EPILEPSY
     Route: 048
     Dates: start: 201207
  2. LAMICTAL [Concomitant]
     Dosage: 50 MG
     Route: 048
     Dates: start: 201207

REACTIONS (1)
  - Cholelithiasis [Recovering/Resolving]
